FAERS Safety Report 6076612-9 (Version None)
Quarter: 2009Q1

REPORT INFORMATION
  Report Type: 
  Country: None (occurrence: None)
  Receive Date: 20090213
  Receipt Date: 20081117
  Transmission Date: 20090719
  Serious: Yes (Other)
  Sender: FDA-Public Use
  Company Number: US-BRISTOL-MYERS SQUIBB COMPANY-14411045

PATIENT
  Sex: Female

DRUGS (2)
  1. IXEMPRA KIT [Suspect]
     Indication: BREAST CANCER METASTATIC
  2. RADIATION THERAPY [Suspect]
     Indication: BREAST CANCER METASTATIC

REACTIONS (1)
  - MALIGNANT NEOPLASM PROGRESSION [None]
